FAERS Safety Report 7491369-2 (Version None)
Quarter: 2011Q2

REPORT INFORMATION
  Report Type: 
  Country: None (occurrence: None)
  Receive Date: 20110519
  Receipt Date: 20110505
  Transmission Date: 20111010
  Serious: Yes (Hospitalization)
  Sender: FDA-Public Use
  Company Number: PHHY2011US41969

PATIENT
  Sex: Male
  Weight: 70.748 kg

DRUGS (9)
  1. ALLOPURINOL [Concomitant]
  2. TASIGNA [Suspect]
     Dosage: 400 MG, BID
     Route: 048
  3. ZOCOR [Concomitant]
  4. COZAAR [Concomitant]
  5. CARDIZEM [Concomitant]
  6. ACETYL SALICYLIC ACID USP BAT [Concomitant]
  7. CELEBREX [Concomitant]
  8. PRILOSEC [Concomitant]
  9. MULTI-VITAMINS [Concomitant]

REACTIONS (2)
  - CHEST PAIN [None]
  - HEART RATE IRREGULAR [None]
